FAERS Safety Report 8042599-2 (Version None)
Quarter: 2012Q1

REPORT INFORMATION
  Report Type: 
  Country: None (occurrence: None)
  Receive Date: 20120112
  Receipt Date: 20120103
  Transmission Date: 20120608
  Serious: Yes (Hospitalization, Other)
  Sender: FDA-Public Use
  Company Number: FR-AMGEN-FRASP2011063305

PATIENT
  Age: 51 Year
  Sex: Female

DRUGS (1)
  1. ENBREL [Suspect]
     Indication: ANKYLOSING SPONDYLITIS
     Dosage: 50 MG, WEEKLY
     Route: 058
     Dates: start: 20080801, end: 20110901

REACTIONS (8)
  - ANKYLOSING SPONDYLITIS [None]
  - ANAL FISSURE [None]
  - CROHN'S DISEASE [None]
  - RENAL COLIC [None]
  - HELICOBACTER GASTRITIS [None]
  - HYPOKALAEMIA [None]
  - OESOPHAGEAL PAPILLOMA [None]
  - DIARRHOEA [None]
